FAERS Safety Report 4777538-0 (Version None)
Quarter: 2005Q3

REPORT INFORMATION
  Report Type: 
  Country: None (occurrence: None)
  Receive Date: 20050921
  Receipt Date: 20050913
  Transmission Date: 20060218
  Serious: Yes (Other)
  Sender: FDA-Public Use
  Company Number: 2005128383

PATIENT
  Age: 48 Year
  Sex: Male

DRUGS (1)
  1. THAHOR             (ATORVASTATIN) [Suspect]
     Indication: TYPE IIA HYPERLIPIDAEMIA
     Dosage: (40 MG)

REACTIONS (1)
  - TENDON RUPTURE [None]
